FAERS Safety Report 5194527-5 (Version None)
Quarter: 2006Q4

REPORT INFORMATION
  Report Type: 
  Country: None (occurrence: None)
  Receive Date: 20061222
  Receipt Date: 20061214
  Transmission Date: 20070319
  Serious: Yes (Other)
  Sender: FDA-Public Use
  Company Number: GBWYE766922JUN06

PATIENT
  Age: 48 Year
  Sex: Male

DRUGS (10)
  1. RAPAMUNE [Suspect]
     Indication: TRANSPLANT REJECTION
     Dosage: SEE IMAGE
     Route: 048
     Dates: start: 20051122, end: 20060228
  2. RAPAMUNE [Suspect]
     Indication: TRANSPLANT REJECTION
     Dosage: SEE IMAGE
     Route: 048
     Dates: start: 20060301, end: 20060510
  3. OMEPRAZOLE [Concomitant]
  4. RAMIPRIL [Concomitant]
  5. SIMVASTATIN [Concomitant]
  6. TACROLIMUS (TACROLIMUS) [Concomitant]
  7. PREDNISOLONE [Concomitant]
  8. GLICLAZIDE (GLICLAZIDE) [Concomitant]
  9. DOXAZOSIN (DOXAZOSIN) [Concomitant]
  10. MYCOPHENOLIC ACID [Concomitant]

REACTIONS (1)
  - NEPHROTIC SYNDROME [None]
